FAERS Safety Report 5476502-6 (Version None)
Quarter: 2007Q3

REPORT INFORMATION
  Report Type: 
  Country: None (occurrence: None)
  Receive Date: 20070924
  Receipt Date: 20070525
  Transmission Date: 20080115
  Serious: Yes (Other)
  Sender: FDA-Public Use
  Company Number: PHEH2007US07935

PATIENT
  Age: 53 Year
  Sex: Female
  Weight: 41.7 kg

DRUGS (1)
  1. FEMARA [Suspect]
     Indication: BREAST CANCER
     Dosage: 2.5 MG, QD, ORAL
     Route: 048
     Dates: start: 20061101

REACTIONS (3)
  - FATIGUE [None]
  - PELVIC FRACTURE [None]
  - WEIGHT DECREASED [None]
